FAERS Safety Report 4457171-0 (Version None)
Quarter: 2004Q3

REPORT INFORMATION
  Report Type: 
  Country: None (occurrence: None)
  Receive Date: 20040923
  Receipt Date: 20040820
  Transmission Date: 20050211
  Serious: Yes (Other)
  Sender: FDA-Public Use
  Company Number: PHBS2004JP10983

PATIENT

DRUGS (1)
  1. PARLODEL [Suspect]
     Indication: MENTAL DISABILITY

REACTIONS (2)
  - DIABETES INSIPIDUS [None]
  - POLYURIA [None]
